FAERS Safety Report 5285890-5 (Version None)
Quarter: 2007Q1

REPORT INFORMATION
  Report Type: 
  Country: None (occurrence: None)
  Receive Date: 20070329
  Receipt Date: 20070327
  Transmission Date: 20070707
  Serious: Yes (Disabling, Other)
  Sender: FDA-Public Use
  Company Number: SP01163

PATIENT
  Age: 50 Year
  Sex: Female
  Weight: 67.1324 kg

DRUGS (1)
  1. OSMOPREP [Suspect]
     Indication: COLONOSCOPY
     Dosage: 4 TABLETS, ORAL
     Route: 048
     Dates: start: 20070301, end: 20070301

REACTIONS (1)
  - HYPERSENSITIVITY [None]
